FAERS Safety Report 21399054 (Version 1)
Quarter: 2022Q4

REPORT INFORMATION
  Report Type: Spontaneous
  Country: GB (occurrence: GB)
  Receive Date: 20221001
  Receipt Date: 20221001
  Transmission Date: 20230113
  Serious: Yes (Death, Life-Threatening, Other)
  Sender: FDA-Public Use
  Company Number: GB-ABBVIE-4134881

PATIENT
  Age: 18 Year
  Sex: Male
  Weight: 32 kg

DRUGS (14)
  1. TESTOSTERONE [Suspect]
     Active Substance: TESTOSTERONE
     Indication: Delayed puberty
     Route: 065
  2. LOPERAMIDE [Concomitant]
     Active Substance: LOPERAMIDE
     Indication: Product used for unknown indication
  3. LANSOPRAZOLE(LANSOPRAZOLE) [Concomitant]
     Indication: Product used for unknown indication
  4. GABAPENTIN(GABAPENTIN) [Concomitant]
     Indication: Neuralgia
  5. CALCICHEW(CALCIUM CARBONATE) [Concomitant]
     Indication: Mineral supplementation
  6. PREDNISOLONE(PREDNISOLONE) [Concomitant]
     Indication: Product used for unknown indication
  7. PHENOXYMETHYLPENICILLIN(PHENOXYMETHYLPENICILLIN) [Concomitant]
     Indication: Prophylaxis
  8. ONDANSETRON(ONDANSETRON) [Concomitant]
     Indication: Nausea
  9. POTASSIUM CHLORIDE(POTASSIUM CHLORIDE) [Concomitant]
     Indication: Mineral supplementation
  10. CLENIL MODULITE(BECLOMETASONE DIPROPIONATE) [Concomitant]
     Indication: Product used for unknown indication
  11. PRIVIGEN [Suspect]
     Active Substance: HUMAN IMMUNOGLOBULIN G
     Indication: Chronic inflammatory demyelinating polyradiculoneuropathy
     Dosage: 60 GRAM, (2G/KG) TOTAL
     Route: 042
     Dates: start: 20220723
  12. PRIVIGEN [Suspect]
     Active Substance: HUMAN IMMUNOGLOBULIN G
     Indication: Chronic inflammatory demyelinating polyradiculoneuropathy
     Route: 042
     Dates: start: 20220723
  13. PRIVIGEN [Suspect]
     Active Substance: HUMAN IMMUNOGLOBULIN G
     Indication: Chronic inflammatory demyelinating polyradiculoneuropathy
     Route: 042
     Dates: start: 20220723
  14. VITAMIN D SUBSTANCES [Concomitant]
     Indication: Vitamin D decreased

REACTIONS (6)
  - Tachycardia [Fatal]
  - Hypotension [Not Recovered/Not Resolved]
  - Electrocardiogram ST segment depression [Not Recovered/Not Resolved]
  - Pericardial effusion [Not Recovered/Not Resolved]
  - Chest pain [Not Recovered/Not Resolved]
  - Troponin I increased [Not Recovered/Not Resolved]

NARRATIVE: CASE EVENT DATE: 20220723
